FAERS Safety Report 25309176 (Version 1)
Quarter: 2025Q2

REPORT INFORMATION
  Report Type: Report from Study
  Country: BR (occurrence: BR)
  Receive Date: 20250513
  Receipt Date: 20250513
  Transmission Date: 20250717
  Serious: Yes (Other)
  Sender: TAKEDA
  Company Number: BR-TAKEDA-2025TUS038444

PATIENT
  Age: 8 Year
  Sex: Male
  Weight: 24.036 kg

DRUGS (3)
  1. IDURSULFASE [Suspect]
     Active Substance: IDURSULFASE
     Indication: Mucopolysaccharidosis II
  2. IDURSULFASE [Suspect]
     Active Substance: IDURSULFASE
  3. IDURSULFASE [Suspect]
     Active Substance: IDURSULFASE

REACTIONS (15)
  - Mitral valve thickening [Unknown]
  - Pyrexia [Unknown]
  - Dilatation ventricular [Unknown]
  - Blood pressure abnormal [Unknown]
  - Heart rate abnormal [Unknown]
  - Body temperature abnormal [Unknown]
  - Inappropriate schedule of product administration [Unknown]
  - Hepatomegaly [Unknown]
  - Reflexes abnormal [Unknown]
  - Gait disturbance [Unknown]
  - Aortic valve thickening [Unknown]
  - Neurodevelopmental delay [Unknown]
  - Language disorder [Unknown]
  - Cognitive disorder [Unknown]
  - Heart valve incompetence [Unknown]

NARRATIVE: CASE EVENT DATE: 20250101
